FAERS Safety Report 12338326 (Version 4)
Quarter: 2016Q2

REPORT INFORMATION
  Report Type: Other
  Country: CA (occurrence: CA)
  Receive Date: 20160505
  Receipt Date: 20160525
  Transmission Date: 20160815
  Serious: Yes (Other)
  Sender: FDA-Public Use
  Company Number: CA-SHIRE-CA201605090

PATIENT
  Age: 69 Year
  Sex: Female

DRUGS (8)
  1. MAGNESIUM SULFATE. [Concomitant]
     Active Substance: MAGNESIUM SULFATE
     Indication: PRODUCT USED FOR UNKNOWN INDICATION
     Dosage: 3 MG, EVERY OTHER DAY IN NS
     Route: 042
  2. SANDOSTATIN [Concomitant]
     Active Substance: OCTREOTIDE ACETATE
     Indication: PRODUCT USED FOR UNKNOWN INDICATION
     Dosage: UNK, MONTHLY
     Route: 030
  3. SODIUM [Concomitant]
     Active Substance: SODIUM
     Indication: PRODUCT USED FOR UNKNOWN INDICATION
     Dosage: UNK
     Route: 048
     Dates: start: 20160516
  4. NORMAL SALINE [Concomitant]
     Active Substance: SODIUM CHLORIDE
     Dosage: UNK
  5. FLUOXETINE [Concomitant]
     Active Substance: FLUOXETINE HYDROCHLORIDE
     Indication: PRODUCT USED FOR UNKNOWN INDICATION
     Dosage: 40 MG, 1X/DAY:QD
     Route: 048
  6. NORMAL SALINE [Concomitant]
     Active Substance: SODIUM CHLORIDE
     Indication: PRODUCT USED FOR UNKNOWN INDICATION
     Dosage: 500 ML, EVERY OTHER DAY OVER 2 HOURS
     Route: 042
  7. URSODIOL. [Concomitant]
     Active Substance: URSODIOL
     Indication: PRODUCT USED FOR UNKNOWN INDICATION
     Dosage: 1500 MG, 1X/DAY:QD
     Route: 048
  8. REVESTIVE [Suspect]
     Active Substance: TEDUGLUTIDE
     Indication: SHORT-BOWEL SYNDROME
     Dosage: 2.5 MG, 1X/DAY:QD
     Route: 058
     Dates: start: 20160408

REACTIONS (9)
  - Vomiting [Recovered/Resolved]
  - Faecal volume decreased [Unknown]
  - Pollakiuria [Unknown]
  - Abdominal distension [Recovering/Resolving]
  - Musculoskeletal discomfort [Recovered/Resolved]
  - Change of bowel habit [Recovered/Resolved]
  - Nocturia [Unknown]
  - Abdominal pain [Recovered/Resolved]
  - Intestinal obstruction [Unknown]

NARRATIVE: CASE EVENT DATE: 201604
